FAERS Safety Report 4725852-7 (Version None)
Quarter: 2005Q3

REPORT INFORMATION
  Report Type: 
  Country: None (occurrence: None)
  Receive Date: 20050727
  Receipt Date: 20050706
  Transmission Date: 20060218
  Serious: Yes (Hospitalization)
  Sender: FDA-Public Use
  Company Number: GBWYE804506JUL05

PATIENT
  Sex: Female

DRUGS (8)
  1. ENBREL [Suspect]
     Indication: RHEUMATOID ARTHRITIS
     Dosage: UNKNOWN
     Dates: start: 20031201, end: 20050601
  2. PREDNISOLONE [Concomitant]
     Dates: start: 20040401
  3. RAMIPRIL [Concomitant]
  4. FUROSEMIDE [Concomitant]
  5. LEVOTHYROXINE SODIUM [Concomitant]
  6. CO-PROXAMOL [Concomitant]
  7. OMEPRAZOLE [Concomitant]
  8. CALCIUM GLUCONATE [Concomitant]

REACTIONS (4)
  - BLOOD TEST ABNORMAL [None]
  - LOWER RESPIRATORY TRACT INFECTION [None]
  - LUNG NEOPLASM MALIGNANT [None]
  - SEPSIS [None]
